FAERS Safety Report 13995395 (Version 2)
Quarter: 2017Q4

REPORT INFORMATION
  Report Type: Spontaneous
  Country: GB (occurrence: GB)
  Receive Date: 20170921
  Receipt Date: 20171011
  Transmission Date: 20180321
  Serious: Yes (Hospitalization)
  Sender: FDA-Public Use
  Company Number: GB-BAXTER-2017BAX032908

PATIENT
  Age: 64 Year
  Sex: Female
  Weight: 82.2 kg

DRUGS (6)
  1. GLUCOSE 5% INTRAVENOUS INFUSION BP [Suspect]
     Active Substance: DEXTROSE
     Indication: MEDICATION DILUTION
     Dosage: COMPOUNDED WITH CARBOPLATIN (HOSPIRA), IV INFUSION BAG
     Route: 042
     Dates: start: 20170721, end: 20170721
  2. CARBOPLATIN. [Suspect]
     Active Substance: CARBOPLATIN
     Indication: CHEMOTHERAPY
     Dosage: 450MG /45ML (10 MG/ML) GLASS VIAL, COMPOUNDED WITH 500 ML GLUCOSE 5% IV INFUSION BAG
     Route: 042
     Dates: start: 20170721, end: 20170721
  3. TAXOL [Suspect]
     Active Substance: PACLITAXEL
     Indication: CHEMOTHERAPY
     Dosage: 8 CYCLES
     Route: 065
     Dates: start: 2015
  4. CARBOPLATIN. [Suspect]
     Active Substance: CARBOPLATIN
     Dosage: RESTARTED
     Route: 065
     Dates: start: 20170623
  5. TAXOL [Suspect]
     Active Substance: PACLITAXEL
     Dosage: RESTARTED
     Route: 065
     Dates: start: 20170623
  6. CARBOPLATIN. [Suspect]
     Active Substance: CARBOPLATIN
     Indication: CHEMOTHERAPY
     Dosage: 8 CYCLES
     Route: 065
     Dates: start: 2015

REACTIONS (2)
  - Erythema [Recovered/Resolved]
  - Pruritus [Recovered/Resolved]

NARRATIVE: CASE EVENT DATE: 20170721
